FAERS Safety Report 8856261 (Version 3)
Quarter: 2013Q1

REPORT INFORMATION
  Report Type: Spontaneous
  Country: JP (occurrence: None)
  Receive Date: 20121018
  Receipt Date: 20121211
  Transmission Date: 20140127
  Serious: Yes (Other)
  Sender: FDA-Public Use
  Company Number: DSA_60170_2012

PATIENT
  Age: 61 Year
  Sex: Female

DRUGS (6)
  1. FLUOROURACIL (FLUOROURACIL) [Suspect]
     Indication: COLON CANCER
     Dosage: DF
  2. OXALIPLATIN (OXALIPLATIN) [Suspect]
     Indication: COLON CANCER
     Dosage: DF
  3. CALCIUM LEVOFOLINATE [Suspect]
     Indication: COLON CANCER
     Dosage: DF
  4. IRINOTECAN [Suspect]
     Indication: COLON CANCER
     Dosage: DF
     Dates: start: 200905
  5. BEVACIZUMAB [Suspect]
     Indication: COLON CANCER
     Dosage: DF
  6. CETUXIMAB (CETUXIMAB) (INFUSION) [Suspect]
     Dosage: DF
     Dates: start: 200908

REACTIONS (4)
  - Cholangitis [None]
  - Metastases to liver [None]
  - Treatment failure [None]
  - Anaemia [None]
